FAERS Safety Report 4884097-0 (Version None)
Quarter: 2006Q1

REPORT INFORMATION
  Report Type: 
  Country: None (occurrence: None)
  Receive Date: 20060118
  Receipt Date: 20050114
  Transmission Date: 20060701
  Serious: Yes (Hospitalization, Other)
  Sender: FDA-Public Use
  Company Number: US-MERCK-0505USA02073

PATIENT
  Age: 67 Year
  Sex: Female
  Weight: 75 kg

DRUGS (2)
  1. VIOXX [Suspect]
     Route: 048
     Dates: start: 19990101, end: 20020127
  2. BEXTRA [Concomitant]
     Route: 065
     Dates: start: 19990101

REACTIONS (4)
  - CARDIAC DISORDER [None]
  - CARDIOVASCULAR DISORDER [None]
  - DEPRESSION [None]
  - MYOCARDIAL INFARCTION [None]
